FAERS Safety Report 9869417 (Version 4)
Quarter: 2018Q2

REPORT INFORMATION
  Report Type: Spontaneous
  Country: US (occurrence: US)
  Receive Date: 20140205
  Receipt Date: 20180529
  Transmission Date: 20180711
  Serious: Yes (Hospitalization, Disabling, Other)
  Sender: FDA-Public Use
  Company Number: US-009507513-1401USA011394

PATIENT
  Sex: Male
  Weight: 108.39 kg

DRUGS (5)
  1. LISINOPRIL. [Concomitant]
     Active Substance: LISINOPRIL
     Indication: HYPERTENSION
     Dosage: 20 MG, QD
     Route: 048
     Dates: start: 2005
  2. COUMADIN [Concomitant]
     Active Substance: WARFARIN SODIUM
     Indication: FACTOR V LEIDEN MUTATION
     Route: 048
  3. PROPECIA [Suspect]
     Active Substance: FINASTERIDE
     Indication: BENIGN PROSTATIC HYPERPLASIA
     Dosage: UNK
     Route: 048
     Dates: start: 201008, end: 201009
  4. PROSCAR [Suspect]
     Active Substance: FINASTERIDE
     Indication: BENIGN PROSTATIC HYPERPLASIA
     Dosage: 5 MG, QD
     Route: 048
     Dates: start: 20100805, end: 201010
  5. FINASTERIDE. [Suspect]
     Active Substance: FINASTERIDE
     Indication: BENIGN PROSTATIC HYPERPLASIA
     Dosage: 5 MG, QD
     Route: 048
     Dates: start: 20100805, end: 201009

REACTIONS (42)
  - Dry skin [Not Recovered/Not Resolved]
  - Fatigue [Not Recovered/Not Resolved]
  - Muscle atrophy [Unknown]
  - Renal cyst [Unknown]
  - Blood oestrogen decreased [Unknown]
  - Organic erectile dysfunction [Not Recovered/Not Resolved]
  - Drug administration error [Recovered/Resolved]
  - Scrotal disorder [Not Recovered/Not Resolved]
  - Rhinovirus infection [Unknown]
  - Blood oestrogen increased [Unknown]
  - Dihydrotestosterone decreased [Not Recovered/Not Resolved]
  - Emotional distress [Unknown]
  - Secondary hypogonadism [Not Recovered/Not Resolved]
  - Sexual dysfunction [Not Recovered/Not Resolved]
  - Penis disorder [Not Recovered/Not Resolved]
  - Poor peripheral circulation [Not Recovered/Not Resolved]
  - Hair texture abnormal [Not Recovered/Not Resolved]
  - Dizziness [Unknown]
  - Pneumonia [Unknown]
  - Penile size reduced [Not Recovered/Not Resolved]
  - Endocrine disorder [Not Recovered/Not Resolved]
  - Anxiety [Unknown]
  - Turbinectomy [Unknown]
  - Libido decreased [Not Recovered/Not Resolved]
  - Semen volume decreased [Unknown]
  - Eczema nummular [Not Recovered/Not Resolved]
  - Penile pain [Unknown]
  - Arthralgia [Recovering/Resolving]
  - Anal sphincter atony [Unknown]
  - Alopecia [Unknown]
  - Androgen deficiency [Not Recovered/Not Resolved]
  - Gynaecomastia [Not Recovered/Not Resolved]
  - Haematuria [Unknown]
  - Testicular atrophy [Not Recovered/Not Resolved]
  - Peripheral coldness [Not Recovered/Not Resolved]
  - Back pain [Recovering/Resolving]
  - Penis disorder [Not Recovered/Not Resolved]
  - Groin pain [Unknown]
  - Nocturia [Recovered/Resolved]
  - Unevaluable event [Not Recovered/Not Resolved]
  - Weight increased [Not Recovered/Not Resolved]
  - Headache [Recovered/Resolved]

NARRATIVE: CASE EVENT DATE: 2010
